FAERS Safety Report 9156575 (Version 1)
Quarter: 2013Q1

REPORT INFORMATION
  Report Type: Spontaneous
  Country: US (occurrence: None)
  Receive Date: 20130208
  Receipt Date: 20130208
  Transmission Date: 20140127
  Serious: Yes (Other)
  Sender: FDA-Public Use
  Company Number: 1584720

PATIENT
  Sex: Female

DRUGS (1)
  1. METHOTREXATE [Suspect]
     Indication: PRODUCT USED FOR UNKNOWN INDICATION
     Dosage: Z044437AB M  EXP. DATE: 03/00/2014

REACTIONS (5)
  - Pharyngeal oedema [None]
  - Swollen tongue [None]
  - Local swelling [None]
  - Dyspnoea [None]
  - Drug hypersensitivity [None]
